FAERS Safety Report 20845888 (Version 2)
Quarter: 2022Q2

REPORT INFORMATION
  Report Type: Spontaneous
  Country: BR (occurrence: BR)
  Receive Date: 20220518
  Receipt Date: 20220602
  Transmission Date: 20220721
  Serious: Yes (Other)
  Sender: FDA-Public Use
  Company Number: BR-TAKEDA-2022TUS030609

PATIENT
  Age: 27 Year
  Sex: Male
  Weight: 96 kg

DRUGS (2)
  1. LISDEXAMFETAMINE DIMESYLATE [Suspect]
     Active Substance: LISDEXAMFETAMINE DIMESYLATE
     Indication: Attention deficit hyperactivity disorder
     Dosage: 1 DOSAGE FORM, QD
     Route: 048
     Dates: start: 2016
  2. LISDEXAMFETAMINE DIMESYLATE [Suspect]
     Active Substance: LISDEXAMFETAMINE DIMESYLATE
     Dosage: 1 DOSAGE FORM, QD
     Route: 048
     Dates: start: 20220429

REACTIONS (13)
  - Condition aggravated [Unknown]
  - Drug ineffective [Unknown]
  - Confusional state [Unknown]
  - Reading disorder [Unknown]
  - Disturbance in attention [Unknown]
  - Bradyphrenia [Unknown]
  - Quality of life decreased [Unknown]
  - Adverse drug reaction [Unknown]
  - Underdose [Unknown]
  - Somnolence [Unknown]
  - Therapy interrupted [Unknown]
  - Drug effect less than expected [Unknown]
  - Incorrect dose administered [Unknown]

NARRATIVE: CASE EVENT DATE: 20220429
